FAERS Safety Report 4479417-5 (Version None)
Quarter: 2004Q4

REPORT INFORMATION
  Report Type: 
  Country: None (occurrence: None)
  Receive Date: 20041015
  Receipt Date: 20041001
  Transmission Date: 20050328
  Serious: Yes (Death)
  Sender: FDA-Public Use
  Company Number: DSA_70415_2004

PATIENT
  Age: 42 Year

DRUGS (3)
  1. PROPOXYPHENE [Suspect]
     Dosage: DF, UNK; PO
     Route: 048
  2. PROMETHAZINE [Suspect]
     Dosage: DF, UNK; PO
     Route: 048
  3. ACETAMINOPHEN [Suspect]
     Dosage: DF, PO
     Route: 048

REACTIONS (1)
  - MULTIPLE DRUG OVERDOSE [None]
